FAERS Safety Report 7786811-3 (Version None)
Quarter: 2011Q3

REPORT INFORMATION
  Report Type: 
  Country: None (occurrence: None)
  Receive Date: 20110927
  Receipt Date: 20110916
  Transmission Date: 20111222
  Serious: Yes (Other)
  Sender: FDA-Public Use
  Company Number: GER/GER/11/0021174

PATIENT
  Age: 72 Year
  Sex: Female
  Weight: 61 kg

DRUGS (12)
  1. LETROZOLE [Suspect]
     Indication: BREAST CANCER
     Dosage: 2.5 MG, 1 IN 1 D, ORAL
     Route: 048
     Dates: start: 20110905, end: 20110906
  2. BUDIAIR (BUDESONIDE) [Concomitant]
  3. LORAZEPAM [Concomitant]
  4. ZOLPIDEM HEXAL (ZOLPIDEM) [Concomitant]
  5. METFORMIN HEXAL (METFORMIN HYDROCHLORIDE) [Concomitant]
  6. SIMVASTATIN [Concomitant]
  7. LYRICA [Concomitant]
  8. FEMARA [Concomitant]
  9. EXFORGE HCT [Concomitant]
  10. ACETYLSALICYLIC ACID SRT [Concomitant]
  11. BISOPROLOL FUMARATE [Concomitant]
  12. CITALOPRAM HYDROBROMIDE [Concomitant]

REACTIONS (10)
  - PALPITATIONS [None]
  - VOMITING [None]
  - ANXIETY [None]
  - HYPERTENSION [None]
  - HYPERHIDROSIS [None]
  - PRESYNCOPE [None]
  - PRODUCT QUALITY ISSUE [None]
  - ARTHRALGIA [None]
  - NAUSEA [None]
  - MYALGIA [None]
